FAERS Safety Report 5525846-8 (Version None)
Quarter: 2007Q4

REPORT INFORMATION
  Report Type: 
  Country: None (occurrence: None)
  Receive Date: 20071126
  Receipt Date: 20071109
  Transmission Date: 20080405
  Serious: Yes (Life-Threatening, Hospitalization)
  Sender: FDA-Public Use
  Company Number: GB-RANBAXY-2007RR-11392

PATIENT

DRUGS (2)
  1. IBUPROFEN TABLETS BP 400MG [Suspect]
     Indication: MUSCULOSKELETAL PAIN
     Dosage: 400 MG, UNK
     Route: 048
  2. LORATADINE 10MG TABLETS [Concomitant]
     Indication: SEASONAL ALLERGY
     Dosage: 10 MG, UNK
     Route: 048

REACTIONS (2)
  - DUODENAL ULCER [None]
  - GASTROINTESTINAL HAEMORRHAGE [None]
